FAERS Safety Report 12933846 (Version 3)
Quarter: 2016Q4

REPORT INFORMATION
  Report Type: Report from Study
  Country: BR (occurrence: BR)
  Receive Date: 20161111
  Receipt Date: 20161228
  Transmission Date: 20170207
  Serious: Yes (Other)
  Sender: FDA-Public Use
  Company Number: BR-JNJFOC-20161021213

PATIENT
  Age: 37 Year
  Sex: Female
  Weight: 65 kg

DRUGS (3)
  1. SIMPONI [Suspect]
     Active Substance: GOLIMUMAB
     Indication: ANKYLOSING SPONDYLITIS
     Route: 058
     Dates: start: 20160902
  2. LEVOID [Concomitant]
     Active Substance: LEVOTHYROXINE
     Route: 065
  3. AZULFIDINE [Concomitant]
     Active Substance: SULFASALAZINE
     Route: 065

REACTIONS (10)
  - Dizziness [Unknown]
  - Fall [Unknown]
  - Pruritus [Unknown]
  - Head discomfort [Unknown]
  - Malaise [Not Recovered/Not Resolved]
  - Application site nodule [Unknown]
  - Haemorrhage [Unknown]
  - Haematoma [Unknown]
  - Menstrual disorder [Not Recovered/Not Resolved]
  - Hypotension [Unknown]

NARRATIVE: CASE EVENT DATE: 2016
